FAERS Safety Report 14983762 (Version 1)
Quarter: 2018Q2

REPORT INFORMATION
  Report Type: Spontaneous
  Country: US (occurrence: US)
  Receive Date: 20180607
  Receipt Date: 20180607
  Transmission Date: 20180711
  Serious: Yes (Death, Other)
  Sender: FDA-Public Use
  Company Number: US-TEVA-784128USA

PATIENT
  Age: 80 Year
  Sex: Male

DRUGS (5)
  1. PLETAL [Concomitant]
     Active Substance: CILOSTAZOL
     Dosage: 50 MILLIGRAM DAILY;
  2. TOPROL XL [Concomitant]
     Active Substance: METOPROLOL SUCCINATE
  3. MOBIC [Concomitant]
     Active Substance: MELOXICAM
     Dosage: 15 MILLIGRAM DAILY;
  4. CLOPIDOGREL [Suspect]
     Active Substance: CLOPIDOGREL BISULFATE
     Indication: CEREBROVASCULAR ACCIDENT PROPHYLAXIS
     Dosage: 75 MILLIGRAM DAILY;
  5. PREDNISONE. [Concomitant]
     Active Substance: PREDNISONE
     Dosage: FOR 2 1/2 MONTHS

REACTIONS (9)
  - Coma [Fatal]
  - Brain death [Fatal]
  - Loss of consciousness [Unknown]
  - Drug ineffective [Unknown]
  - Cerebral haemorrhage [Unknown]
  - Unresponsive to stimuli [Unknown]
  - Adverse event [Unknown]
  - Haemorrhage intracranial [Fatal]
  - Cerebrovascular accident [Fatal]

NARRATIVE: CASE EVENT DATE: 20160223
